FAERS Safety Report 16682828 (Version 1)
Quarter: 2019Q3

REPORT INFORMATION
  Report Type: Spontaneous
  Country: IT (occurrence: IT)
  Receive Date: 20190808
  Receipt Date: 20190808
  Transmission Date: 20191004
  Serious: Yes (Hospitalization, Other)
  Sender: FDA-Public Use
  Company Number: IT-MYLANLABS-2019M1073477

PATIENT
  Age: 60 Year
  Sex: Female

DRUGS (2)
  1. NITROGLYCERIN. [Suspect]
     Active Substance: NITROGLYCERIN
     Indication: PRODUCT USED FOR UNKNOWN INDICATION
     Route: 042
  2. BISOPROLOL [Suspect]
     Active Substance: BISOPROLOL
     Indication: HYPERTENSION
     Dosage: 2.5 MILLIGRAM, QD
     Route: 048

REACTIONS (7)
  - Hypertension [Recovered/Resolved]
  - Mitral valve incompetence [Recovered/Resolved]
  - Systolic anterior motion of mitral valve [Recovered/Resolved]
  - Left ventricle outflow tract obstruction [Recovering/Resolving]
  - Cardiogenic shock [Recovered/Resolved]
  - Stress cardiomyopathy [Recovering/Resolving]
  - Pulmonary oedema [Recovered/Resolved]
